FAERS Safety Report 4663492-9 (Version None)
Quarter: 2005Q2

REPORT INFORMATION
  Report Type: 
  Country: None (occurrence: None)
  Receive Date: 20050517
  Receipt Date: 20050224
  Transmission Date: 20051028
  Serious: Yes (Hospitalization, Other)
  Sender: FDA-Public Use
  Company Number: US-GLAXOSMITHKLINE-A0547622A

PATIENT
  Age: 39 Year
  Sex: Male

DRUGS (5)
  1. PAXIL [Suspect]
     Indication: BIPOLAR DISORDER
     Dosage: 60MG PER DAY
     Route: 048
     Dates: start: 20020101
  2. DEPAKOTE [Concomitant]
     Indication: BIPOLAR DISORDER
     Dosage: 1000MG TWICE PER DAY
     Route: 048
  3. CLONIDINE [Concomitant]
     Indication: SLEEP DISORDER
     Dosage: .2MG AT NIGHT
     Route: 048
  4. EFFEXOR XR [Concomitant]
     Route: 048
     Dates: start: 20050201, end: 20050301
  5. TRAZODONE [Concomitant]
     Indication: DRUG USE FOR UNKNOWN INDICATION
     Route: 048

REACTIONS (6)
  - ANXIETY [None]
  - DRUG WITHDRAWAL SYNDROME [None]
  - SLEEP DISORDER [None]
  - SUICIDAL IDEATION [None]
  - TREMOR [None]
  - WEIGHT INCREASED [None]
